FAERS Safety Report 6034555-0 (Version None)
Quarter: 2009Q1

REPORT INFORMATION
  Report Type: 
  Country: None (occurrence: None)
  Receive Date: 20090108
  Receipt Date: 20090108
  Transmission Date: 20090719
  Serious: Yes (Hospitalization)
  Sender: FDA-Public Use
  Company Number: None

PATIENT
  Sex: Male
  Weight: 68.49 kg

DRUGS (2)
  1. TAXOTERE [Suspect]
     Dosage: 132 MG
  2. PREDNISONE TAB [Suspect]
     Dosage: 210 MG

REACTIONS (1)
  - DEEP VEIN THROMBOSIS [None]
